FAERS Safety Report 4286839-4 (Version None)
Quarter: 2004Q1

REPORT INFORMATION
  Report Type: 
  Country: None (occurrence: None)
  Receive Date: 20040206
  Receipt Date: 20040127
  Transmission Date: 20041129
  Serious: Yes (Other)
  Sender: FDA-Public Use
  Company Number: PHBS2004CA01442

PATIENT
  Sex: Female

DRUGS (3)
  1. ESTRADERM [Suspect]
     Indication: HORMONE REPLACEMENT THERAPY
     Dosage: 50 UG/DAY
     Route: 062
     Dates: start: 19920101, end: 20031201
  2. SYNTHROID [Concomitant]
     Dates: start: 20030901, end: 20031201
  3. SYNTHROID [Concomitant]
     Dates: start: 20031201, end: 20040101

REACTIONS (6)
  - AGGRESSION [None]
  - DRUG INEFFECTIVE [None]
  - HOT FLUSH [None]
  - INSOMNIA [None]
  - MENOPAUSAL SYMPTOMS [None]
  - THYROID DISORDER [None]
